FAERS Safety Report 20485429 (Version 2)
Quarter: 2022Q2

REPORT INFORMATION
  Report Type: Spontaneous
  Country: US (occurrence: US)
  Receive Date: 20220217
  Receipt Date: 20220408
  Transmission Date: 20220720
  Serious: No
  Sender: FDA-Public Use
  Company Number: US-PFIZER INC-202200112000

PATIENT
  Age: 56 Year
  Sex: Female
  Weight: 61.23 kg

DRUGS (1)
  1. BICILLIN L-A [Suspect]
     Active Substance: PENICILLIN G BENZATHINE
     Indication: Endemic syphilis
     Dosage: UNK

REACTIONS (1)
  - Drug ineffective [Unknown]
